FAERS Safety Report 7482496-4 (Version None)
Quarter: 2011Q2

REPORT INFORMATION
  Report Type: 
  Country: None (occurrence: None)
  Receive Date: 20110516
  Receipt Date: 20110502
  Transmission Date: 20111010
  Serious: Yes (Other)
  Sender: FDA-Public Use
  Company Number: US-UCBSA-029653

PATIENT

DRUGS (1)
  1. VIMPAT [Suspect]

REACTIONS (3)
  - SYSTEMIC LUPUS ERYTHEMATOSUS [None]
  - SOMNOLENCE [None]
  - ABNORMAL BEHAVIOUR [None]
